FAERS Safety Report 23149762 (Version 1)
Quarter: 2023Q4

REPORT INFORMATION
  Report Type: Spontaneous
  Country: US (occurrence: None)
  Receive Date: 20231104
  Receipt Date: 20231104
  Transmission Date: 20240110
  Serious: Yes (Other)
  Sender: FDA-Public Use
  Company Number: None

PATIENT
  Sex: 0

DRUGS (2)
  1. TRIAMCINOLONE [Suspect]
     Active Substance: TRIAMCINOLONE
     Indication: Rash pruritic
     Dosage: OTHER FREQUENCY : OTHER;?
     Route: 030
     Dates: start: 20231018, end: 20231018
  2. Triamcinolone 40 mg [Concomitant]
     Dates: start: 20231018, end: 20231018

REACTIONS (1)
  - Seizure [None]

NARRATIVE: CASE EVENT DATE: 20231018
